FAERS Safety Report 4268869-1 (Version None)
Quarter: 2004Q1

REPORT INFORMATION
  Report Type: 
  Country: None (occurrence: None)
  Receive Date: 20040109
  Receipt Date: 20031231
  Transmission Date: 20041129
  Serious: Yes (Hospitalization)
  Sender: FDA-Public Use
  Company Number: DSA_60378_2004

PATIENT
  Age: 71 Year
  Sex: Female

DRUGS (4)
  1. MYSOLINE [Suspect]
     Indication: COMPLEX PARTIAL SEIZURES
     Dosage: 625 MG DAILY PO
     Route: 048
  2. VALPROIC ACID [Concomitant]
  3. OXAZEPAM [Concomitant]
  4. AMITRIPTYLINE HCL [Concomitant]

REACTIONS (11)
  - ASTHENIA [None]
  - ATRIOVENTRICULAR BLOCK FIRST DEGREE [None]
  - CONVULSION [None]
  - DEMENTIA [None]
  - DEPRESSED MOOD [None]
  - DYSARTHRIA [None]
  - DYSPHAGIA [None]
  - IMMOBILE [None]
  - MENTAL STATUS CHANGES [None]
  - SEDATION [None]
  - URINARY TRACT INFECTION [None]
